FAERS Safety Report 5696299-4 (Version None)
Quarter: 2008Q2

REPORT INFORMATION
  Report Type: 
  Country: None (occurrence: None)
  Receive Date: 20080407
  Receipt Date: 20080326
  Transmission Date: 20081010
  Serious: Yes (Hospitalization)
  Sender: FDA-Public Use
  Company Number: JP-ELI_LILLY_AND_COMPANY-JP200803001742

PATIENT
  Sex: Male
  Weight: 33 kg

DRUGS (4)
  1. SOMATROPIN [Suspect]
     Indication: GROWTH HORMONE DEFICIENCY
     Dosage: 1 MG, 5/W
     Route: 058
     Dates: start: 20060117
  2. THYRADIN-S [Concomitant]
     Indication: SECONDARY HYPOTHYROIDISM
     Dosage: 60 UG, DAILY (1/D)
     Route: 048
     Dates: start: 20050123
  3. CORTRIL [Concomitant]
     Dosage: 6 MG, 2/D
     Route: 048
     Dates: start: 20050123
  4. DESMOPRESSIN ACETATE [Concomitant]
     Indication: DIABETES INSIPIDUS
     Dosage: 0.025 MG, 2/D
     Route: 045
     Dates: start: 20041218

REACTIONS (1)
  - CRANIOPHARYNGIOMA [None]
